FAERS Safety Report 24137378 (Version 2)
Quarter: 2025Q3

REPORT INFORMATION
  Report Type: Spontaneous
  Country: EU (occurrence: EU)
  Receive Date: 20240725
  Receipt Date: 20250830
  Transmission Date: 20251021
  Serious: Yes (Life-Threatening)
  Sender: ORGANON
  Company Number: None

PATIENT
  Age: 53 Year
  Sex: Female
  Weight: 48.5 kg

DRUGS (8)
  1. MIRTAZAPINE [Suspect]
     Active Substance: MIRTAZAPINE
     Indication: Product used for unknown indication
     Dosage: 30 MILLIGRAM, QD
     Route: 048
     Dates: end: 20240605
  2. LAMOTRIGINE [Suspect]
     Active Substance: LAMOTRIGINE
     Indication: Epilepsy
     Dosage: 400 MILLIGRAM, QD
     Route: 048
     Dates: end: 20240605
  3. VALPROATE SODIUM [Suspect]
     Active Substance: VALPROATE SODIUM
     Indication: Epilepsy
     Dosage: 3 DOSAGE FORM, QD, 500 MG, PROLONGED RELEASE GRANULES IN SACHET-DOSE
     Route: 048
  4. UMECLIDINIUM BROMIDE\VILANTEROL TRIFENATATE [Concomitant]
     Active Substance: UMECLIDINIUM BROMIDE\VILANTEROL TRIFENATATE
     Dosage: 1 DOSAGE FORM, QD, 55 MICRORAMMES/22 MICROGRAMS, POWDER FOR INHALATION IN SINGLE DOSE-CONTAINER
     Dates: end: 20240605
  5. DESOGESTREL [Concomitant]
     Active Substance: DESOGESTREL
     Dosage: 75 MICROGRAM, QD
     Route: 048
     Dates: end: 20240605
  6. NICOTINE EG [Concomitant]
     Dosage: 1 DOSAGE FORM, QD, 14 MG/24H, TRANSDERMAL DEVICE
     Route: 003
     Dates: end: 20240605
  7. NITROFURANTOIN [Concomitant]
     Active Substance: NITROFURANTOIN
     Dosage: 3 DOSAGE FORM, QD
     Route: 048
     Dates: start: 20240603, end: 20240605
  8. BETAHISTINE [Concomitant]
     Active Substance: BETAHISTINE
     Dosage: 48 MILLIGRAM, QD
     Route: 048
     Dates: end: 20240605

REACTIONS (3)
  - Coma [Recovered/Resolved]
  - Anticonvulsant drug level increased [Recovered/Resolved]
  - Status epilepticus [Recovered/Resolved]

NARRATIVE: CASE EVENT DATE: 20240605
